FAERS Safety Report 16111111 (Version 2)
Quarter: 2019Q2

REPORT INFORMATION
  Report Type: Spontaneous
  Country: FI (occurrence: FI)
  Receive Date: 20190325
  Receipt Date: 20190425
  Transmission Date: 20190711
  Serious: Yes (Other)
  Sender: FDA-Public Use
  Company Number: FI-IPSEN BIOPHARMACEUTICALS, INC.-2019-04388

PATIENT
  Age: 50 Year
  Sex: Female

DRUGS (7)
  1. ANTIEMETICS AND ANTINAUSEANTS. [Concomitant]
  2. FLUOROURACIL. [Suspect]
     Active Substance: FLUOROURACIL
     Indication: PANCREATIC CARCINOMA
     Route: 042
     Dates: start: 20181022, end: 20181022
  3. PHENAZONE [Concomitant]
     Active Substance: ANTIPYRINE
     Dosage: ANALGESIC
  4. RELVAR ELLIPTA [Concomitant]
     Active Substance: FLUTICASONE FUROATE\VILANTEROL TRIFENATATE
  5. BENZOCAINE. [Concomitant]
     Active Substance: BENZOCAINE
     Dosage: ANALGESIC
  6. ONIVYDE [Suspect]
     Active Substance: IRINOTECAN HYDROCHLORIDE
     Indication: PANCREATIC CARCINOMA
     Dosage: UNK
     Route: 058
     Dates: start: 20181022, end: 20181022
  7. THYROXIN [Concomitant]
     Active Substance: LEVOTHYROXINE

REACTIONS (3)
  - Muscle spasms [Recovered/Resolved]
  - Back pain [Recovered/Resolved]
  - Incorrect route of product administration [Unknown]

NARRATIVE: CASE EVENT DATE: 20181022
